FAERS Safety Report 8185273-4 (Version None)
Quarter: 2012Q1

REPORT INFORMATION
  Report Type: 
  Country: None (occurrence: None)
  Receive Date: 20120305
  Receipt Date: 20120224
  Transmission Date: 20120608
  Serious: Yes (Other)
  Sender: FDA-Public Use
  Company Number: PHEH2012US004561

PATIENT
  Age: 76 Year
  Sex: Male
  Weight: 85.261 kg

DRUGS (1)
  1. ZOLEDRONIC ACID [Suspect]
     Indication: BONE DISORDER
     Dosage: 4 MG Q28D
     Route: 042
     Dates: start: 20100421

REACTIONS (1)
  - PROSTATE CANCER [None]
